FAERS Safety Report 4300874-9 (Version None)
Quarter: 2004Q1

REPORT INFORMATION
  Report Type: 
  Country: None (occurrence: None)
  Receive Date: 20040218
  Receipt Date: 20040107
  Transmission Date: 20041129
  Serious: No
  Sender: FDA-Public Use
  Company Number: 2003-08-2954

PATIENT
  Age: 51 Year
  Sex: Female
  Weight: 68.0396 kg

DRUGS (7)
  1. PEG-INTRON [Suspect]
     Indication: HEPATITIS C
     Dosage: 180MCG QWK SUBCUTANEOUS
     Route: 058
     Dates: start: 20011117, end: 20020519
  2. REBETOL [Suspect]
     Indication: HEPATITIS C
     Dosage: 400 MG QD ORAL
     Route: 048
     Dates: start: 20011117, end: 20020519
  3. INDERAL [Concomitant]
  4. XANAX [Concomitant]
  5. MULTI-VITAMINS [Concomitant]
  6. PRILOSEC [Concomitant]
  7. NEXIUM [Concomitant]

REACTIONS (11)
  - ALOPECIA [None]
  - AMNESIA [None]
  - ANXIETY [None]
  - ARTHRALGIA [None]
  - ASTHENIA [None]
  - DYSGEUSIA [None]
  - DYSLEXIA [None]
  - FATIGUE [None]
  - HYPERTENSION [None]
  - MIGRAINE [None]
  - RESPIRATORY TRACT CONGESTION [None]
